FAERS Safety Report 8231333-9 (Version None)
Quarter: 2012Q1

REPORT INFORMATION
  Report Type: 
  Country: None (occurrence: None)
  Receive Date: 20120323
  Receipt Date: 20120319
  Transmission Date: 20120608
  Serious: Yes (Hospitalization)
  Sender: FDA-Public Use
  Company Number: GB-AMGEN-GBRCT2012017419

PATIENT
  Age: 76 Year
  Sex: Female

DRUGS (4)
  1. PANITUMUMAB [Suspect]
     Indication: GASTROOESOPHAGEAL CANCER
     Dosage: UNK
     Dates: start: 20110217, end: 20110217
  2. EPIRUBICIN [Concomitant]
     Indication: GASTROOESOPHAGEAL CANCER
  3. OXALIPLATIN [Concomitant]
     Indication: GASTROOESOPHAGEAL CANCER
  4. CAPECITABINE [Concomitant]
     Indication: GASTROOESOPHAGEAL CANCER

REACTIONS (1)
  - CHEST PAIN [None]
